FAERS Safety Report 14608216 (Version 2)
Quarter: 2018Q1

REPORT INFORMATION
  Report Type: Spontaneous
  Country: US (occurrence: US)
  Receive Date: 20180307
  Receipt Date: 20180313
  Transmission Date: 20180509
  Serious: Yes (Other)
  Sender: FDA-Public Use
  Company Number: US-BAYER-2018-041482

PATIENT
  Age: 22 Year
  Sex: Female

DRUGS (3)
  1. MIRENA [Suspect]
     Active Substance: LEVONORGESTREL
     Dosage: 20 MCG/24HR, CONT
     Route: 015
  2. MIRENA [Suspect]
     Active Substance: LEVONORGESTREL
  3. CYTOTEC [Concomitant]
     Active Substance: MISOPROSTOL
     Indication: CERVICAL DILATATION

REACTIONS (5)
  - Genital haemorrhage [None]
  - Abdominal pain [None]
  - Device expulsion [None]
  - Device breakage [None]
  - Complication of device removal [None]
